FAERS Safety Report 24608744 (Version 13)
Quarter: 2025Q2

REPORT INFORMATION
  Report Type: Spontaneous
  Country: US (occurrence: US)
  Receive Date: 20241112
  Receipt Date: 20250616
  Transmission Date: 20250716
  Serious: No
  Sender: KARYOPHARM THERAPEUTICS
  Company Number: US-KARYOPHARM-2024KPT001759

PATIENT

DRUGS (13)
  1. XPOVIO [Suspect]
     Active Substance: SELINEXOR
     Indication: Plasma cell myeloma
     Route: 048
  2. XPOVIO [Suspect]
     Active Substance: SELINEXOR
     Route: 048
     Dates: start: 20241029
  3. XPOVIO [Suspect]
     Active Substance: SELINEXOR
  4. ACYCLOVIR [Concomitant]
     Active Substance: ACYCLOVIR
  5. AMIODARONE [Concomitant]
     Active Substance: AMIODARONE
  6. DEXAMETHASONE [Concomitant]
     Active Substance: DEXAMETHASONE
  7. ENTRESTO [Concomitant]
     Active Substance: SACUBITRIL\VALSARTAN
  8. JARDIANCE [Concomitant]
     Active Substance: EMPAGLIFLOZIN
  9. LASIX [Concomitant]
     Active Substance: FUROSEMIDE
  10. LATANOPROST [Concomitant]
     Active Substance: LATANOPROST
  11. ONDANSETRON [Concomitant]
     Active Substance: ONDANSETRON
  12. SPIRONOLACTONE [Concomitant]
     Active Substance: SPIRONOLACTONE
  13. ELIQUIS [Concomitant]
     Active Substance: APIXABAN

REACTIONS (6)
  - Productive cough [Unknown]
  - Diarrhoea [Not Recovered/Not Resolved]
  - Fatigue [Unknown]
  - Nausea [Not Recovered/Not Resolved]
  - Constipation [Recovering/Resolving]
  - Weight decreased [Unknown]

NARRATIVE: CASE EVENT DATE: 20240101
